FAERS Safety Report 14602676 (Version 2)
Quarter: 2018Q1

REPORT INFORMATION
  Report Type: Report from Study
  Country: None (occurrence: DE)
  Receive Date: 20180306
  Receipt Date: 20180313
  Transmission Date: 20180509
  Serious: Yes (Hospitalization, Other)
  Sender: FDA-Public Use
  Company Number: DE-ABBVIE-18K-062-2271165-00

PATIENT
  Age: 51 Year
  Sex: Male

DRUGS (4)
  1. CITALOPRAM [Concomitant]
     Active Substance: CITALOPRAM HYDROBROMIDE
     Indication: PRODUCT USED FOR UNKNOWN INDICATION
     Dates: start: 2012, end: 201802
  2. HUMIRA [Suspect]
     Active Substance: ADALIMUMAB
     Indication: COLITIS ULCERATIVE
     Route: 058
     Dates: start: 2017, end: 201801
  3. MARCUMAR [Concomitant]
     Active Substance: PHENPROCOUMON
     Indication: PRODUCT USED FOR UNKNOWN INDICATION
  4. CITALOPRAM [Concomitant]
     Active Substance: CITALOPRAM HYDROBROMIDE
     Dosage: TWICE PER DAY IN CASE OF STRESS.
     Dates: start: 2012, end: 201802

REACTIONS (23)
  - Erythema [Recovered/Resolved]
  - Drug ineffective [Unknown]
  - Urinary retention [Recovered/Resolved]
  - Mental disorder [Recovered/Resolved]
  - Crying [Recovered/Resolved]
  - Depression [Recovered/Resolved]
  - Abdominal pain [Not Recovered/Not Resolved]
  - Acute kidney injury [Unknown]
  - Dizziness [Recovered/Resolved]
  - Mobility decreased [Not Recovered/Not Resolved]
  - Fluid intake reduced [Recovered/Resolved]
  - Arthralgia [Recovered/Resolved]
  - Nipple pain [Recovered/Resolved]
  - Tongue fungal infection [Unknown]
  - Arthropathy [Unknown]
  - Hypophagia [Recovered/Resolved]
  - Abscess [Recovering/Resolving]
  - Enterovesical fistula [Unknown]
  - Loss of personal independence in daily activities [Recovered/Resolved]
  - Decreased appetite [Recovered/Resolved]
  - Gait inability [Unknown]
  - Blood uric acid increased [Unknown]
  - Nausea [Recovered/Resolved]

NARRATIVE: CASE EVENT DATE: 201801
